FAERS Safety Report 8607679 (Version 2)
Quarter: 2013Q2

REPORT INFORMATION
  Report Type: Report from Study
  Country: JP (occurrence: JP)
  Receive Date: 20120611
  Receipt Date: 20130426
  Transmission Date: 20140414
  Serious: Yes (Other)
  Sender: FDA-Public Use
  Company Number: JP-VERTEX PHARMACEUTICALS INC.-AE-2012-008341

PATIENT
  Age: 71 Year
  Sex: Female

DRUGS (6)
  1. VX-950 (TELAPREVIR) [Suspect]
     Indication: CHRONIC HEPATITIS C
     Dosage: 1500 MG, QD
     Route: 048
     Dates: start: 20120404, end: 20120410
  2. RIBAVIRIN [Suspect]
     Indication: CHRONIC HEPATITIS C
     Dosage: 400 MG, QD
     Route: 048
     Dates: start: 20120404, end: 20120410
  3. PEGINTERFERON ALFA-2B [Suspect]
     Indication: CHRONIC HEPATITIS C
     Dosage: 80 ?G, QW
     Route: 058
     Dates: start: 20120404, end: 20120410
  4. URSO [Concomitant]
     Dosage: 600 MG, QD
     Route: 048
  5. PRAVASTATIN NA [Concomitant]
     Dosage: 5 MG, QD
     Route: 048
  6. CONIEL [Concomitant]
     Dosage: 4 MG, QD
     Route: 048

REACTIONS (1)
  - Gastric ulcer [Recovered/Resolved]
